FAERS Safety Report 5625436-2 (Version None)
Quarter: 2008Q1

REPORT INFORMATION
  Report Type: 
  Country: None (occurrence: None)
  Receive Date: 20080211
  Receipt Date: 20080201
  Transmission Date: 20080703
  Serious: Yes (Other)
  Sender: FDA-Public Use
  Company Number: OSCN-PR-0801S-0048

PATIENT
  Age: 39 Year
  Sex: Male

DRUGS (2)
  1. OMNISCAN [Suspect]
     Indication: MASS
     Dosage: 15 ML,SINGLE,DOSE,I.V.
     Route: 042
     Dates: start: 20071227, end: 20071227
  2. UNSPECIFIED ^WATER PILL^ [Concomitant]

REACTIONS (5)
  - ABASIA [None]
  - CEREBROVASCULAR ACCIDENT [None]
  - PRURITUS [None]
  - RENAL DISORDER [None]
  - SYNCOPE [None]
